FAERS Safety Report 7432351-0 (Version None)
Quarter: 2011Q2

REPORT INFORMATION
  Report Type: 
  Country: None (occurrence: None)
  Receive Date: 20110422
  Receipt Date: 20071105
  Transmission Date: 20111010
  Serious: Yes (Other)
  Sender: FDA-Public Use
  Company Number: PHHY2007MX03809

PATIENT
  Sex: Female

DRUGS (2)
  1. AVANDAMET [Concomitant]
  2. CO-DIOVAN [Suspect]
     Route: 048

REACTIONS (2)
  - DIABETIC COMA [None]
  - HYPOTENSION [None]
